FAERS Safety Report 17374284 (Version 1)
Quarter: 2020Q1

REPORT INFORMATION
  Report Type: Spontaneous
  Country: CA (occurrence: CA)
  Receive Date: 20200206
  Receipt Date: 20200206
  Transmission Date: 20200409
  Serious: Yes (Other)
  Sender: FDA-Public Use
  Company Number: CA-ROCHE-2533772

PATIENT
  Age: 61 Year
  Sex: Female

DRUGS (1)
  1. TAMIFLU [Suspect]
     Active Substance: OSELTAMIVIR PHOSPHATE
     Indication: INFLUENZA
     Route: 065
     Dates: start: 20200121, end: 20200122

REACTIONS (12)
  - Crying [Unknown]
  - Feeling abnormal [Unknown]
  - Dysuria [Unknown]
  - Emotional disorder [Unknown]
  - Abdominal pain upper [Unknown]
  - Dyschezia [Unknown]
  - Gastric dilatation [Unknown]
  - Tremor [Unknown]
  - Ear pain [Unknown]
  - Hypoacusis [Unknown]
  - Visual impairment [Unknown]
  - Pain [Unknown]

NARRATIVE: CASE EVENT DATE: 20200122
